FAERS Safety Report 19275187 (Version 2)
Quarter: 2022Q2

REPORT INFORMATION
  Report Type: Report from Study
  Country: US (occurrence: US)
  Receive Date: 20210519
  Receipt Date: 20220511
  Transmission Date: 20220721
  Serious: No
  Sender: FDA-Public Use
  Company Number: US-TEVA-2021-US-1910441

PATIENT
  Age: 20 Year
  Sex: Male

DRUGS (1)
  1. CLARAVIS [Suspect]
     Active Substance: ISOTRETINOIN
     Indication: Acne
     Dosage: 20 MILLIGRAM DAILY;
     Route: 065

REACTIONS (4)
  - Lip dry [Recovered/Resolved]
  - Rash [Recovered/Resolved]
  - Inappropriate schedule of product discontinuation [Unknown]
  - Off label use [Unknown]
